FAERS Safety Report 17513042 (Version 1)
Quarter: 2020Q1

REPORT INFORMATION
  Report Type: Report from Study
  Country: DE (occurrence: DE)
  Receive Date: 20200308
  Receipt Date: 20200308
  Transmission Date: 20200409
  Serious: Yes (Hospitalization)
  Sender: FDA-Public Use
  Company Number: DE-CELLTRION INC.-2017DE017770

PATIENT

DRUGS (2)
  1. INFLIXIMAB PFIZER (UNKNOWN) [Suspect]
     Active Substance: INFLIXIMAB
     Dosage: 10 MG/KG, EVERY 8 WEEKS
     Dates: start: 201702
  2. INFLIXIMAB PFIZER (UNKNOWN) [Suspect]
     Active Substance: INFLIXIMAB
     Indication: COLITIS
     Dosage: 5 MG/KG, AT WEEK 0, 2, 6 AND EVERY 8 WEEKS
     Dates: start: 20160818

REACTIONS (11)
  - Lymphadenopathy [Recovering/Resolving]
  - Pyrexia [Recovered/Resolved]
  - Stenosis [Recovered/Resolved]
  - Drug level decreased [Unknown]
  - Hyperaemia [Recovered/Resolved]
  - Colitis ulcerative [Recovered/Resolved]
  - Vomiting [Recovered/Resolved]
  - Diarrhoea haemorrhagic [Recovered/Resolved]
  - Weight decreased [Recovered/Resolved]
  - Nausea [Recovered/Resolved]
  - Drug specific antibody present [Unknown]

NARRATIVE: CASE EVENT DATE: 201609
